FAERS Safety Report 7996869-4 (Version None)
Quarter: 2011Q4

REPORT INFORMATION
  Report Type: 
  Country: None (occurrence: None)
  Receive Date: 20111221
  Receipt Date: 20111212
  Transmission Date: 20120403
  Serious: Yes (Hospitalization)
  Sender: FDA-Public Use
  Company Number: CA-BRISTOL-MYERS SQUIBB COMPANY-16298861

PATIENT
  Age: 64 Year
  Sex: Male
  Weight: 84 kg

DRUGS (7)
  1. ACETAMINOPHEN [Concomitant]
     Indication: PAIN
     Dates: start: 20010501
  2. CIPROFLOXACIN [Concomitant]
     Indication: INFECTION
     Dates: start: 20111205
  3. CISPLATIN [Suspect]
     Indication: HEAD AND NECK CANCER
     Dosage: REGIMEN 1
     Route: 042
     Dates: start: 20111128
  4. ERBITUX [Suspect]
     Indication: HEAD AND NECK CANCER
     Dosage: REGIMEN 1
     Route: 042
     Dates: start: 20111128, end: 20111128
  5. IMOVANE [Concomitant]
     Indication: INSOMNIA
     Dates: start: 20111001
  6. FLUOROURACIL [Suspect]
     Indication: HEAD AND NECK CANCER
     Dosage: REGIMEN 1
     Route: 042
     Dates: start: 20111129
  7. FLAGYL [Concomitant]
     Indication: INFECTION
     Dates: start: 20111205

REACTIONS (1)
  - DUODENAL PERFORATION [None]
